FAERS Safety Report 17430089 (Version 5)
Quarter: 2021Q1

REPORT INFORMATION
  Report Type: Spontaneous
  Country: US (occurrence: US)
  Receive Date: 20200218
  Receipt Date: 20210112
  Transmission Date: 20210419
  Serious: No
  Sender: FDA-Public Use
  Company Number: US-PFIZER INC-2019558093

PATIENT
  Age: 70 Year
  Sex: Female

DRUGS (4)
  1. PREMARIN [Suspect]
     Active Substance: ESTROGENS, CONJUGATED
     Dosage: UNK, 2X/WEEK (USE IT FOR 2 WEEKS EVERY NIGHT AND AFTER THE 2 WEEKS YOU USE IT TWICE A WEEK)
  2. PREMARIN [Suspect]
     Active Substance: ESTROGENS, CONJUGATED
     Dosage: UNK
     Route: 067
  3. PREMARIN [Suspect]
     Active Substance: ESTROGENS, CONJUGATED
     Dosage: UNK, 1X/DAY (USE IT FOR 2 WEEKS EVERY NIGHT AND AFTER THE 2 WEEKS YOU USE IT TWICE A WEEK)
  4. PREMARIN [Suspect]
     Active Substance: ESTROGENS, CONJUGATED
     Dosage: UNK, 2X/WEEK
     Dates: start: 202003

REACTIONS (5)
  - Hormone level abnormal [Unknown]
  - Off label use [Unknown]
  - Product use issue [Unknown]
  - Intentional product misuse [Unknown]
  - Product prescribing error [Unknown]
